FAERS Safety Report 8558485-5 (Version None)
Quarter: 2012Q3

REPORT INFORMATION
  Report Type: 
  Country: None (occurrence: None)
  Receive Date: 20120801
  Receipt Date: 20120720
  Transmission Date: 20120928
  Serious: No
  Sender: FDA-Public Use
  Company Number: US-ASTRAZENECA-2012SE15403

PATIENT
  Age: 54 Year
  Sex: Female

DRUGS (5)
  1. NEXIUM [Suspect]
     Dosage: TWICE DAILY
     Route: 048
  2. CRESTOR [Suspect]
     Route: 048
  3. DONNATAL [Concomitant]
  4. NEXIUM [Suspect]
     Route: 048
  5. NEXIUM [Suspect]
     Route: 048

REACTIONS (3)
  - FALL [None]
  - ABDOMINAL PAIN UPPER [None]
  - GASTROINTESTINAL ULCER [None]
